FAERS Safety Report 9319333 (Version 1)
Quarter: 2013Q2

REPORT INFORMATION
  Report Type: Spontaneous
  Country: US (occurrence: None)
  Receive Date: 20130520
  Receipt Date: 20130520
  Transmission Date: 20140414
  Serious: No
  Sender: FDA-Public Use
  Company Number: None

PATIENT
  Age: 55 Year
  Sex: Male
  Weight: 116.12 kg

DRUGS (1)
  1. ATORVASTATIN 20MG [Suspect]

REACTIONS (4)
  - Myalgia [None]
  - Product substitution issue [None]
  - Drug intolerance [None]
  - Therapeutic response unexpected with drug substitution [None]
